FAERS Safety Report 19665462 (Version 2)
Quarter: 2021Q4

REPORT INFORMATION
  Report Type: Spontaneous
  Country: US (occurrence: US)
  Receive Date: 20210806
  Receipt Date: 20211007
  Transmission Date: 20220303
  Serious: Yes (Other)
  Sender: FDA-Public Use
  Company Number: US-CELGENE-USA-20210800503

PATIENT
  Age: 67 Year
  Sex: Female

DRUGS (3)
  1. POMALYST [Suspect]
     Active Substance: POMALIDOMIDE
     Indication: Chronic graft versus host disease
     Dosage: 1 MILLIGRAM
     Route: 048
     Dates: start: 20210707, end: 20210728
  2. POMALYST [Suspect]
     Active Substance: POMALIDOMIDE
     Indication: Myeloproliferative neoplasm
  3. POMALYST [Suspect]
     Active Substance: POMALIDOMIDE
     Indication: Off label use

REACTIONS (2)
  - Haemoglobin decreased [Unknown]
  - Dyspnoea [Unknown]

NARRATIVE: CASE EVENT DATE: 20210707
